FAERS Safety Report 18873882 (Version 7)
Quarter: 2021Q3

REPORT INFORMATION
  Report Type: Spontaneous
  Country: US (occurrence: US)
  Receive Date: 20210210
  Receipt Date: 20210902
  Transmission Date: 20211014
  Serious: Yes (Hospitalization)
  Sender: FDA-Public Use
  Company Number: US-PFIZER INC-2021115082

PATIENT
  Age: 61 Year
  Sex: Female

DRUGS (1)
  1. IBRANCE [Suspect]
     Active Substance: PALBOCICLIB
     Indication: BREAST CANCER FEMALE
     Dosage: 125 MG, UNK
     Dates: start: 20200702

REACTIONS (12)
  - Pneumonia [Unknown]
  - Melanocytic naevus [Recovering/Resolving]
  - Malaise [Unknown]
  - Blood glucose decreased [Unknown]
  - Fatigue [Unknown]
  - Hypoacusis [Unknown]
  - Eye disorder [Unknown]
  - Cystitis [Unknown]
  - Nausea [Not Recovered/Not Resolved]
  - Therapeutic response unexpected [Unknown]
  - Haemoglobin decreased [Unknown]
  - Vomiting [Not Recovered/Not Resolved]

NARRATIVE: CASE EVENT DATE: 20210129
